FAERS Safety Report 6854036-1 (Version None)
Quarter: 2010Q3

REPORT INFORMATION
  Report Type: 
  Country: None (occurrence: None)
  Receive Date: 20100717
  Receipt Date: 20071210
  Transmission Date: 20110219
  Serious: No
  Sender: FDA-Public Use
  Company Number: US-PFIZER INC-2007108634

PATIENT
  Sex: Male

DRUGS (11)
  1. CHANTIX [Suspect]
  2. ALBUTEROL [Concomitant]
  3. ADVAIR DISKUS 100/50 [Concomitant]
  4. MUCINEX [Concomitant]
  5. SPIRIVA [Concomitant]
  6. NASONEX [Concomitant]
  7. RHINOCORT [Concomitant]
  8. ASTELIN [Concomitant]
  9. TRAZODONE HYDROCHLORIDE [Concomitant]
  10. FLUOXETINE HCL [Concomitant]
  11. CHLOROQUINE PHOSPHATE [Concomitant]

REACTIONS (2)
  - DRUG DOSE OMISSION [None]
  - DRUG WITHDRAWAL SYNDROME [None]
